FAERS Safety Report 22636592 (Version 1)
Quarter: 2023Q2

REPORT INFORMATION
  Report Type: Spontaneous
  Country: RU (occurrence: RU)
  Receive Date: 20230623
  Receipt Date: 20230623
  Transmission Date: 20230722
  Serious: Yes (Death, Other)
  Sender: FDA-Public Use
  Company Number: RU-009507513-2306RUS010154

PATIENT
  Age: 68 Year
  Sex: Female
  Weight: 74 kg

DRUGS (4)
  1. KEYTRUDA [Suspect]
     Active Substance: PEMBROLIZUMAB
     Indication: Renal cell carcinoma
     Dosage: 1 TIME IN THREE WEEKS
     Dates: start: 20230314, end: 20230404
  2. PEMBROLIZUMAB [Suspect]
     Active Substance: PEMBROLIZUMAB
     Indication: Renal cell carcinoma
     Dosage: THE DRUG (PEMBRORIA) WAS ADMINISTERED ONCE ON 25-APR-2023
     Dates: start: 20230425, end: 20230425
  3. ANASTROZOLE [Concomitant]
     Active Substance: ANASTROZOLE
     Indication: Breast cancer
     Dosage: 1 MG PER DAY EVERY DAY
     Dates: end: 20230510
  4. AXITINIB [Concomitant]
     Active Substance: AXITINIB
     Indication: Renal cell carcinoma
     Dosage: 10 MG PER DAY
     Dates: start: 20230314, end: 20230509

REACTIONS (3)
  - Death [Fatal]
  - Immune-mediated nephritis [Recovering/Resolving]
  - Immune-mediated hepatitis [Unknown]

NARRATIVE: CASE EVENT DATE: 20230508
